FAERS Safety Report 8961685 (Version 1)
Quarter: 2012Q4

REPORT INFORMATION
  Report Type: 
  Country: PL (occurrence: PL)
  Receive Date: 20121213
  Receipt Date: 20121213
  Transmission Date: 20130627
  Serious: Yes (Hospitalization, Other)
  Sender: FDA-Public Use
  Company Number: PHHY2012PL112928

PATIENT
  Age: 76 Year

DRUGS (8)
  1. MYFORTIC [Suspect]
     Indication: RENAL TRANSPLANT
     Dosage: 360 mg, BID
     Dates: start: 200802
  2. CERTICAN [Concomitant]
     Indication: IMMUNOSUPPRESSION
     Dosage: 0.75 mg, BID
     Dates: start: 20120620
  3. NEORAL [Concomitant]
     Dosage: 100 + 75 mg
  4. NEORAL [Concomitant]
     Dosage: 75 + 50 mg
  5. BONVIVA [Concomitant]
  6. LOKREN [Concomitant]
     Indication: HYPERTENSION
     Dosage: UNK UKN, UNK
  7. INHIBACE ^ANDREU^ [Concomitant]
     Indication: HYPERTENSION
     Dosage: UNK UKN, UNK
  8. SPIRONOL [Concomitant]
     Indication: HYPERTENSION
     Dosage: UNK UKN, UNK

REACTIONS (14)
  - Bronchitis [Unknown]
  - Grand mal convulsion [Unknown]
  - Urinary incontinence [Unknown]
  - Metastases to lymph nodes [Unknown]
  - Blood creatinine increased [Unknown]
  - Lung neoplasm malignant [Unknown]
  - Emphysema [Unknown]
  - Pulmonary calcification [Unknown]
  - Dyspnoea [Unknown]
  - Pulmonary fibrosis [Unknown]
  - Limb injury [Unknown]
  - Asthenia [Unknown]
  - Back pain [Unknown]
  - Oedema peripheral [Unknown]
